FAERS Safety Report 4307354-5 (Version None)
Quarter: 2004Q1

REPORT INFORMATION
  Report Type: 
  Country: None (occurrence: None)
  Receive Date: 20040226
  Receipt Date: 20040213
  Transmission Date: 20041129
  Serious: Yes (Congenital Anomaly)
  Sender: FDA-Public Use
  Company Number: 2004009814

PATIENT
  Sex: Female

DRUGS (2)
  1. ZITHROMAX [Suspect]
     Indication: STREPTOCOCCAL INFECTION
  2. METHOTREXATE [Suspect]
     Indication: ILL-DEFINED DISORDER

REACTIONS (9)
  - ABASIA [None]
  - CONGENITAL ANOMALY [None]
  - DYSSTASIA [None]
  - HYPERMOBILITY SYNDROME [None]
  - HYPOTONIA [None]
  - INFANTILE COLIC [None]
  - LIGAMENT LAXITY [None]
  - TERATOGENICITY [None]
  - TRANSMISSION OF DRUG VIA SEMEN [None]
